FAERS Safety Report 9421822 (Version 1)
Quarter: 2013Q3

REPORT INFORMATION
  Report Type: Spontaneous
  Country: US (occurrence: None)
  Receive Date: 20130724
  Receipt Date: 20130724
  Transmission Date: 20140515
  Serious: Yes (Life-Threatening)
  Sender: FDA-Public Use
  Company Number: None

PATIENT
  Age: 31 Year
  Sex: Female
  Weight: 117 kg

DRUGS (12)
  1. MEPERIDINE [Suspect]
     Indication: ABDOMINAL PAIN
     Route: 042
     Dates: start: 20130305
  2. ARTOTEC [Concomitant]
  3. PITOCIN [Concomitant]
  4. FENTANYL [Concomitant]
  5. PROPOFOL [Concomitant]
  6. BUPIVACAINE [Concomitant]
  7. TERBUTALINE [Concomitant]
  8. SUCCINYLCHOLINE [Concomitant]
  9. LACTATED RINGERS [Concomitant]
  10. MORPHINE [Concomitant]
  11. BUPIVICAINE [Concomitant]
  12. ZOFRAN [Concomitant]

REACTIONS (3)
  - Caesarean section [None]
  - Cardio-respiratory arrest [None]
  - Exposure during pregnancy [None]
